FAERS Safety Report 20640133 (Version 1)
Quarter: 2022Q1

REPORT INFORMATION
  Report Type: Spontaneous
  Country: None (occurrence: FR)
  Receive Date: 20220326
  Receipt Date: 20220326
  Transmission Date: 20220423
  Serious: Yes (Death)
  Sender: FDA-Public Use
  Company Number: FR-AFSSAPS-ST20220735

PATIENT
  Age: 60 Year
  Sex: Male

DRUGS (1)
  1. OXYGEN [Suspect]
     Active Substance: OXYGEN
     Indication: Chronic respiratory failure
     Route: 045

REACTIONS (2)
  - Thermal burn [Fatal]
  - Obstructive airways disorder [Fatal]
